FAERS Safety Report 8940719 (Version 1)
Quarter: 2012Q4

REPORT INFORMATION
  Report Type: 
  Country: IT (occurrence: IT)
  Receive Date: 20121203
  Receipt Date: 20121203
  Transmission Date: 20130627
  Serious: Yes (Death)
  Sender: FDA-Public Use
  Company Number: IT-WATSON-2012-20918

PATIENT
  Age: 53 Year
  Sex: Male

DRUGS (2)
  1. METHYLPREDNISOLONE ACETATE [Suspect]
     Indication: DRUG RASH WITH EOSINOPHILIA AND SYSTEMIC SYMPTOMS
     Dosage: 1 mg/kg, daily
     Route: 042
  2. DAPSONE [Suspect]
     Indication: SKIN DEPIGMENTATION
     Dosage: 100 mg, daily
     Route: 065

REACTIONS (8)
  - Pneumonia fungal [Fatal]
  - Scedosporium infection [Fatal]
  - Drug reaction with eosinophilia and systemic symptoms [Fatal]
  - Disseminated intravascular coagulation [None]
  - Renal failure acute [None]
  - Continuous haemodiafiltration [None]
  - Pleural effusion [None]
  - Respiratory failure [None]
